FAERS Safety Report 21989347 (Version 2)
Quarter: 2023Q1

REPORT INFORMATION
  Report Type: Report from Study
  Country: DE (occurrence: DE)
  Receive Date: 20230214
  Receipt Date: 20230219
  Transmission Date: 20230418
  Serious: Yes (Hospitalization, Other)
  Sender: FDA-Public Use
  Company Number: DE-CELLTRION INC.-2023DE002800

PATIENT

DRUGS (3)
  1. BEVACIZUMAB [Suspect]
     Active Substance: BEVACIZUMAB
     Indication: Neoplasm malignant
     Dosage: 15 MG/KG, EVERY 3 WEEKS (DATE OF MOST RECENT DOSE OF CANCER TREATMENT 2 PRIOR TO AE/SAE ONSET 2022-1
     Route: 042
     Dates: start: 20220829
  2. PACLITAXEL [Suspect]
     Active Substance: PACLITAXEL
     Indication: Neoplasm malignant
     Dosage: 175 MG/M2, EVERY 3 WEEKS (DATE OF MOST RECENT DOSE OF CANCER TREATMENT 3 PRIOR TO AE/SAE ONSET 2022-
     Route: 042
     Dates: start: 20220829
  3. CARBOPLATIN [Suspect]
     Active Substance: CARBOPLATIN
     Indication: Neoplasm malignant
     Dosage: EVERY 3 WEEKS (DATE OF MOST RECENT DOSE OF CANCER TREATMENT 1 PRIOR TO AE/SAE ONSET 2022-12-19 DOSE:
     Route: 042
     Dates: start: 20220829

REACTIONS (1)
  - Neuropathy peripheral [Not Recovered/Not Resolved]

NARRATIVE: CASE EVENT DATE: 20230123
